FAERS Safety Report 19879123 (Version 1)
Quarter: 2021Q3

REPORT INFORMATION
  Report Type: Report from Study
  Country: None (occurrence: US)
  Receive Date: 20210924
  Receipt Date: 20210924
  Transmission Date: 20211014
  Serious: Yes (Other)
  Sender: FDA-Public Use
  Company Number: US-ABBVIE-21K-163-4089854-00

PATIENT
  Sex: Female

DRUGS (1)
  1. HUMIRA [Suspect]
     Active Substance: ADALIMUMAB
     Indication: CROHN^S DISEASE
     Route: 058

REACTIONS (5)
  - Anaphylactic shock [Recovered/Resolved]
  - Blindness [Not Recovered/Not Resolved]
  - Unevaluable event [Unknown]
  - Pain [Recovering/Resolving]
  - Scar [Recovering/Resolving]
